FAERS Safety Report 5867032-8 (Version None)
Quarter: 2008Q3

REPORT INFORMATION
  Report Type: 
  Country: None (occurrence: None)
  Receive Date: 20080902
  Receipt Date: 20080825
  Transmission Date: 20090109
  Serious: Yes (Death, Hospitalization)
  Sender: FDA-Public Use
  Company Number: A0745481A

PATIENT
  Age: 85 Year
  Sex: Male
  Weight: 53 kg

DRUGS (1)
  1. SERETIDE [Suspect]
     Route: 055
     Dates: start: 20080101, end: 20080629

REACTIONS (2)
  - ADVERSE EVENT [None]
  - DEATH [None]
